FAERS Safety Report 4289822-8 (Version None)
Quarter: 2004Q1

REPORT INFORMATION
  Report Type: 
  Country: None (occurrence: None)
  Receive Date: 20040210
  Receipt Date: 20040130
  Transmission Date: 20041129
  Serious: Yes (Other)
  Sender: FDA-Public Use
  Company Number: US-BRISTOL-MYERS SQUIBB COMPANY-12492872

PATIENT
  Age: 48 Year
  Sex: Female
  Weight: 47 kg

DRUGS (5)
  1. PARAPLATIN [Suspect]
     Indication: OVARIAN CANCER METASTATIC
     Route: 042
     Dates: start: 20031215, end: 20031215
  2. ATIVAN [Concomitant]
     Indication: PREMEDICATION
  3. SOLU-MEDROL [Concomitant]
     Indication: PREMEDICATION
  4. DIPHENHYDRAMINE HCL [Concomitant]
     Indication: PREMEDICATION
  5. ZOFRAN [Concomitant]
     Indication: PREMEDICATION

REACTIONS (5)
  - BLOOD PRESSURE ABNORMAL [None]
  - EAR CONGESTION [None]
  - ERYTHEMA [None]
  - HEART RATE ABNORMAL [None]
  - SINUS CONGESTION [None]
